FAERS Safety Report 15473160 (Version 2)
Quarter: 2018Q4

REPORT INFORMATION
  Report Type: Other
  Country: GB (occurrence: GB)
  Receive Date: 20181008
  Receipt Date: 20181128
  Transmission Date: 20190205
  Serious: Yes (Death, Other)
  Sender: FDA-Public Use
  Company Number: GB-LUPIN PHARMACEUTICALS INC.-2018-06937

PATIENT
  Age: 21 Year
  Sex: Male
  Weight: 57 kg

DRUGS (1)
  1. SERTRALINE [Suspect]
     Active Substance: SERTRALINE HYDROCHLORIDE
     Indication: PRODUCT USED FOR UNKNOWN INDICATION
     Dosage: 50 MG, UNK
     Route: 065
     Dates: start: 20171208

REACTIONS (2)
  - Completed suicide [Fatal]
  - Suicidal ideation [Fatal]

NARRATIVE: CASE EVENT DATE: 20171211
